FAERS Safety Report 9823241 (Version 1)
Quarter: 2014Q1

REPORT INFORMATION
  Report Type: Spontaneous
  Country: US (occurrence: US)
  Receive Date: 20140116
  Receipt Date: 20140116
  Transmission Date: 20141002
  Serious: Yes (Other)
  Sender: FDA-Public Use
  Company Number: US-NAPPMUNDI-USA-2013-0102367

PATIENT
  Age: 27 Year
  Sex: Female

DRUGS (3)
  1. DILAUDID INJECTION [Suspect]
     Indication: ABDOMINAL PAIN
     Route: 051
  2. SOLIRIS [Suspect]
     Indication: HAEMOLYTIC URAEMIC SYNDROME
     Dosage: UNK
     Route: 065
     Dates: start: 20120304
  3. SOLIRIS [Suspect]
     Dosage: 1200 MG, WEEKLY
     Route: 065
     Dates: start: 20130401

REACTIONS (1)
  - Hallucination [Unknown]
